FAERS Safety Report 21372395 (Version 9)
Quarter: 2023Q1

REPORT INFORMATION
  Report Type: Spontaneous
  Country: CA (occurrence: CA)
  Receive Date: 20220924
  Receipt Date: 20230331
  Transmission Date: 20230417
  Serious: Yes (Other)
  Sender: FDA-Public Use
  Company Number: CA-CELLTRION INC.-2018CA023750

PATIENT

DRUGS (46)
  1. INFLECTRA [Suspect]
     Active Substance: INFLIXIMAB-DYYB
     Indication: Crohn^s disease
     Dosage: 300 MG, WEEK 6 THEN Q 8 WEEKS
     Route: 042
     Dates: start: 20180118
  2. INFLECTRA [Suspect]
     Active Substance: INFLIXIMAB-DYYB
     Dosage: 1000 MG Q4W
     Route: 042
     Dates: start: 20181001
  3. INFLECTRA [Suspect]
     Active Substance: INFLIXIMAB-DYYB
     Dosage: 300 MG, Q 6 WEEKS
     Route: 042
     Dates: start: 20181112
  4. INFLECTRA [Suspect]
     Active Substance: INFLIXIMAB-DYYB
     Dosage: 500 MG Q 6 WEEKS
     Route: 042
     Dates: start: 20181229, end: 20181229
  5. INFLECTRA [Suspect]
     Active Substance: INFLIXIMAB-DYYB
     Dosage: 500 MG Q 4 WEEKS
     Route: 042
     Dates: start: 20190128, end: 20190912
  6. INFLECTRA [Suspect]
     Active Substance: INFLIXIMAB-DYYB
     Dosage: 500 MG Q 4 WEEKS
     Route: 042
     Dates: start: 20190228
  7. INFLECTRA [Suspect]
     Active Substance: INFLIXIMAB-DYYB
     Dosage: 500 MG Q 4 WEEKS
     Route: 042
     Dates: start: 20190328
  8. INFLECTRA [Suspect]
     Active Substance: INFLIXIMAB-DYYB
     Dosage: 500 MG Q 4 WEEKS
     Route: 042
     Dates: start: 20190523
  9. INFLECTRA [Suspect]
     Active Substance: INFLIXIMAB-DYYB
     Dosage: 500 MG Q 4 WEEKS
     Route: 042
     Dates: start: 20190720
  10. INFLECTRA [Suspect]
     Active Substance: INFLIXIMAB-DYYB
     Dosage: 500 MG Q 4 WEEKS
     Route: 042
     Dates: start: 20190912, end: 20190912
  11. INFLECTRA [Suspect]
     Active Substance: INFLIXIMAB-DYYB
     Dosage: 800 MG Q 4 WEEKS
     Route: 042
     Dates: start: 20191009, end: 20191009
  12. INFLECTRA [Suspect]
     Active Substance: INFLIXIMAB-DYYB
     Dosage: 12.5 MG/KG, (EVERY 4 WEEKS)
  13. INFLECTRA [Suspect]
     Active Substance: INFLIXIMAB-DYYB
     Dosage: 1000 MG (EVERY) 4 WEEKS
     Route: 042
     Dates: start: 20191106
  14. INFLECTRA [Suspect]
     Active Substance: INFLIXIMAB-DYYB
     Dosage: 1000 MG (EVERY) 4 WEEKS
     Route: 042
     Dates: start: 20200102
  15. INFLECTRA [Suspect]
     Active Substance: INFLIXIMAB-DYYB
     Dosage: 1000 MG (EVERY) 4 WEEKS
     Route: 042
     Dates: start: 20200130
  16. INFLECTRA [Suspect]
     Active Substance: INFLIXIMAB-DYYB
     Dosage: 1000 MG (EVERY) 4 WEEKS
     Route: 042
     Dates: start: 20200814
  17. INFLECTRA [Suspect]
     Active Substance: INFLIXIMAB-DYYB
     Dosage: 1000 MG (EVERY) 4 WEEKS
     Route: 042
     Dates: start: 20200911
  18. INFLECTRA [Suspect]
     Active Substance: INFLIXIMAB-DYYB
     Dosage: 1000 MG (EVERY) 4 WEEKS
     Route: 042
     Dates: start: 20201008
  19. INFLECTRA [Suspect]
     Active Substance: INFLIXIMAB-DYYB
     Dosage: 1000 MG (EVERY) 4 WEEKS
     Route: 042
     Dates: start: 20201105
  20. INFLECTRA [Suspect]
     Active Substance: INFLIXIMAB-DYYB
     Dosage: 1000 MG (EVERY) 4 WEEKS
     Route: 042
     Dates: start: 20201203
  21. INFLECTRA [Suspect]
     Active Substance: INFLIXIMAB-DYYB
     Dosage: 1000 MG (EVERY) 4 WEEKS
     Route: 042
     Dates: start: 20201231
  22. INFLECTRA [Suspect]
     Active Substance: INFLIXIMAB-DYYB
     Dosage: 1000 MG (EVERY) 4 WEEKS
     Route: 042
     Dates: start: 20210128
  23. INFLECTRA [Suspect]
     Active Substance: INFLIXIMAB-DYYB
     Dosage: 1000 MG (EVERY) 4 WEEKS
     Route: 042
     Dates: start: 20210225
  24. INFLECTRA [Suspect]
     Active Substance: INFLIXIMAB-DYYB
     Dosage: 1000 MG (EVERY) 4 WEEKS
     Route: 042
     Dates: start: 20210325
  25. INFLECTRA [Suspect]
     Active Substance: INFLIXIMAB-DYYB
     Dosage: 1000 MG (EVERY) 4 WEEKS
     Route: 042
     Dates: start: 20210422
  26. INFLECTRA [Suspect]
     Active Substance: INFLIXIMAB-DYYB
     Dosage: 1000 MG (EVERY) 4 WEEKS
     Route: 042
     Dates: start: 20210520
  27. INFLECTRA [Suspect]
     Active Substance: INFLIXIMAB-DYYB
     Dosage: 1000 MG (EVERY) 4 WEEKS
     Route: 042
     Dates: start: 20210617
  28. INFLECTRA [Suspect]
     Active Substance: INFLIXIMAB-DYYB
     Dosage: 1000 MG (EVERY) 4 WEEKS
     Route: 042
     Dates: start: 20210714
  29. INFLECTRA [Suspect]
     Active Substance: INFLIXIMAB-DYYB
     Dosage: 1000 MG (EVERY) 4 WEEKS
     Route: 042
     Dates: start: 20210811
  30. INFLECTRA [Suspect]
     Active Substance: INFLIXIMAB-DYYB
     Dosage: 1000 MG (EVERY) 4 WEEKS
     Route: 042
     Dates: start: 20210908
  31. INFLECTRA [Suspect]
     Active Substance: INFLIXIMAB-DYYB
     Dosage: 1000 MG (EVERY) 4 WEEKS
     Route: 042
     Dates: start: 20211006
  32. INFLECTRA [Suspect]
     Active Substance: INFLIXIMAB-DYYB
     Dosage: 1000 MG (EVERY) 4 WEEKS
     Route: 042
     Dates: start: 20211228
  33. INFLECTRA [Suspect]
     Active Substance: INFLIXIMAB-DYYB
     Dosage: 1000 MG (EVERY) 4 WEEKS
     Route: 042
     Dates: start: 20220125
  34. INFLECTRA [Suspect]
     Active Substance: INFLIXIMAB-DYYB
     Dosage: 1000 MG (EVERY) 4 WEEKS
     Route: 042
     Dates: start: 20220222
  35. INFLECTRA [Suspect]
     Active Substance: INFLIXIMAB-DYYB
     Dosage: 1000 MG (EVERY) 4 WEEKS
     Route: 042
     Dates: start: 20220519
  36. INFLECTRA [Suspect]
     Active Substance: INFLIXIMAB-DYYB
     Dosage: 1000 MG (EVERY) 4 WEEKS
     Route: 042
     Dates: start: 20220616
  37. INFLECTRA [Suspect]
     Active Substance: INFLIXIMAB-DYYB
     Dosage: 1000 MG (EVERY) 4 WEEKS
     Route: 042
     Dates: start: 20220714
  38. INFLECTRA [Suspect]
     Active Substance: INFLIXIMAB-DYYB
     Dosage: 1000 MG (EVERY) 4 WEEK
     Route: 042
     Dates: start: 20220811
  39. INFLECTRA [Suspect]
     Active Substance: INFLIXIMAB-DYYB
     Dosage: 1000 MG (EVERY) 4 WEEK
     Route: 042
     Dates: start: 20220908, end: 20220908
  40. INFLECTRA [Suspect]
     Active Substance: INFLIXIMAB-DYYB
     Dosage: 1000 MG, EVERY 4 WEEK
     Route: 041
     Dates: start: 20221006
  41. INFLECTRA [Suspect]
     Active Substance: INFLIXIMAB-DYYB
     Dosage: 1000 MG, EVERY 4 WEEK
     Route: 041
     Dates: start: 20221103
  42. INFLECTRA [Suspect]
     Active Substance: INFLIXIMAB-DYYB
     Dosage: 1000 MG, EVERY 4 WEEK
     Route: 041
     Dates: start: 20221201
  43. INFLECTRA [Suspect]
     Active Substance: INFLIXIMAB-DYYB
     Dosage: 1000 MG, EVERY 4 WEEKS
     Route: 041
     Dates: start: 20221229
  44. INFLECTRA [Suspect]
     Active Substance: INFLIXIMAB-DYYB
     Dosage: 1000 MG, EVERY 4 WEEKS
     Route: 041
     Dates: start: 20230126
  45. INFLECTRA [Suspect]
     Active Substance: INFLIXIMAB-DYYB
     Dosage: 1000 MG EVERY 4 WEEKS
     Route: 042
     Dates: start: 20230223
  46. INFLECTRA [Suspect]
     Active Substance: INFLIXIMAB-DYYB
     Dosage: 1000MG EVERY 4 WEEKS
     Route: 042
     Dates: start: 20230323

REACTIONS (11)
  - Gastrointestinal infection [Unknown]
  - Therapeutic product effect incomplete [Recovering/Resolving]
  - Drug level decreased [Unknown]
  - Nasopharyngitis [Recovered/Resolved]
  - Weight increased [Not Recovered/Not Resolved]
  - Poor venous access [Unknown]
  - Nausea [Unknown]
  - Off label use [Unknown]
  - Off label use [Unknown]
  - Off label use [Unknown]
  - Intentional product use issue [Unknown]

NARRATIVE: CASE EVENT DATE: 20180101
